FAERS Safety Report 12343067 (Version 1)
Quarter: 2016Q2

REPORT INFORMATION
  Report Type: Spontaneous
  Country: US (occurrence: US)
  Receive Date: 20160506
  Receipt Date: 20160506
  Transmission Date: 20160815
  Serious: Yes (Hospitalization, Other)
  Sender: FDA-Public Use
  Company Number: US-SA-2016SA088855

PATIENT
  Age: 42 Year
  Sex: Female

DRUGS (2)
  1. LEMTRADA [Suspect]
     Active Substance: ALEMTUZUMAB
     Route: 065
     Dates: start: 201509
  2. TYSABRI [Concomitant]
     Active Substance: NATALIZUMAB
     Dates: start: 201509, end: 201509

REACTIONS (1)
  - Renal cell carcinoma [Recovered/Resolved]
